FAERS Safety Report 10616078 (Version 2)
Quarter: 2014Q4

REPORT INFORMATION
  Report Type: Spontaneous
  Country: IT (occurrence: IT)
  Receive Date: 20141201
  Receipt Date: 20141209
  Transmission Date: 20150529
  Serious: Yes (Hospitalization)
  Sender: FDA-Public Use
  Company Number: PHHY2014IT155710

PATIENT
  Age: 84 Year
  Sex: Female

DRUGS (13)
  1. STALEVO [Suspect]
     Active Substance: CARBIDOPA\ENTACAPONE\LEVODOPA
     Indication: PARKINSON^S DISEASE
     Dosage: 600 MG, QD
     Route: 048
     Dates: start: 20141001
  2. MEPRAL [Concomitant]
     Active Substance: OMEPRAZOLE SODIUM
     Indication: PRODUCT USED FOR UNKNOWN INDICATION
     Dosage: UNK
     Route: 065
  3. ASPIRIN. [Concomitant]
     Active Substance: ASPIRIN
     Indication: PRODUCT USED FOR UNKNOWN INDICATION
     Dosage: UNK
     Route: 065
  4. NEUPRO [Suspect]
     Active Substance: ROTIGOTINE
     Indication: PARKINSON^S DISEASE
     Dosage: 2 MG, QD
     Route: 062
     Dates: start: 20140601, end: 20141103
  5. STILNOX [Concomitant]
     Active Substance: ZOLPIDEM TARTRATE
     Indication: PRODUCT USED FOR UNKNOWN INDICATION
     Dosage: UNK
     Route: 065
  6. LOSARTAN POTASSIUM AND HYDROCHLOROTHIAZIDE [Concomitant]
     Active Substance: HYDROCHLOROTHIAZIDE\LOSARTAN POTASSIUM
     Indication: PRODUCT USED FOR UNKNOWN INDICATION
     Dosage: UNK
     Route: 065
  7. SELOKEN [Concomitant]
     Active Substance: METOPROLOL
     Indication: PRODUCT USED FOR UNKNOWN INDICATION
     Dosage: UNK
     Route: 065
  8. JUMEX [Interacting]
     Active Substance: SELEGILINE HYDROCHLORIDE
     Indication: PARKINSON^S DISEASE
     Dosage: 10 MG, QD
     Route: 048
     Dates: start: 20140101, end: 20141103
  9. TORVAST [Concomitant]
     Active Substance: ATORVASTATIN
     Indication: PRODUCT USED FOR UNKNOWN INDICATION
     Dosage: 40 MG, UNK
     Route: 048
  10. PLAQUENIL [Concomitant]
     Active Substance: HYDROXYCHLOROQUINE SULFATE
     Indication: PRODUCT USED FOR UNKNOWN INDICATION
     Dosage: UNK
     Route: 065
  11. MODURETIC 5-50 [Concomitant]
     Active Substance: AMILORIDE HYDROCHLORIDE\HYDROCHLOROTHIAZIDE
     Indication: PRODUCT USED FOR UNKNOWN INDICATION
     Dosage: UNK
     Route: 065
  12. STALEVO [Interacting]
     Active Substance: CARBIDOPA\ENTACAPONE\LEVODOPA
     Dosage: 100 MG, QID
     Route: 048
  13. REMERON [Concomitant]
     Active Substance: MIRTAZAPINE
     Indication: PRODUCT USED FOR UNKNOWN INDICATION
     Dosage: 7.5 MG, UNK
     Route: 048
     Dates: start: 20140101, end: 20141103

REACTIONS (2)
  - Hallucination [Recovered/Resolved]
  - Drug interaction [Recovered/Resolved]

NARRATIVE: CASE EVENT DATE: 20141103
